FAERS Safety Report 15603264 (Version 1)
Quarter: 2018Q4

REPORT INFORMATION
  Report Type: Spontaneous
  Country: JP (occurrence: JP)
  Receive Date: 20181109
  Receipt Date: 20181109
  Transmission Date: 20190205
  Serious: Yes (Death, Life-Threatening, Other)
  Sender: FDA-Public Use
  Company Number: JP-BAYER-2018-204208

PATIENT
  Age: 70 Year
  Sex: Male

DRUGS (1)
  1. NEXAVAR [Suspect]
     Active Substance: SORAFENIB
     Indication: HEPATOCELLULAR CARCINOMA
     Dosage: DAILY DOSE 200 MG
     Route: 048
     Dates: start: 20110401, end: 20110601

REACTIONS (6)
  - Haematemesis [Fatal]
  - Gastrointestinal angiectasia [None]
  - Gastric ulcer [None]
  - Gastrointestinal ulcer [None]
  - Hepatic cirrhosis [None]
  - Hepatocellular carcinoma [None]

NARRATIVE: CASE EVENT DATE: 20110601
